FAERS Safety Report 24305102 (Version 1)
Quarter: 2024Q3

REPORT INFORMATION
  Report Type: Report from Study
  Country: US (occurrence: US)
  Receive Date: 20240911
  Receipt Date: 20240911
  Transmission Date: 20241017
  Serious: Yes (Death)
  Sender: ABBVIE
  Company Number: US-ABBVIE-5915597

PATIENT
  Sex: Male

DRUGS (1)
  1. RESTASIS [Suspect]
     Active Substance: CYCLOSPORINE
     Indication: Product used for unknown indication
     Dosage: FORM STRENGTH: CYCLOSPORINE 0.5 MILLIGRAM/MILLILITER
     Route: 047

REACTIONS (1)
  - Death [Fatal]
